FAERS Safety Report 14710130 (Version 7)
Quarter: 2018Q2

REPORT INFORMATION
  Report Type: Report from Study
  Country: GB (occurrence: GB)
  Receive Date: 20180403
  Receipt Date: 20180620
  Transmission Date: 20180711
  Serious: Yes (Death, Hospitalization, Other)
  Sender: FDA-Public Use
  Company Number: GB-BRISTOL-MYERS SQUIBB COMPANY-BMS-2017-067647

PATIENT
  Sex: Male

DRUGS (1)
  1. ABATACEPT [Suspect]
     Active Substance: ABATACEPT
     Indication: RHEUMATOID ARTHRITIS
     Dosage: 125 MG, QWK
     Route: 058
     Dates: start: 20160104

REACTIONS (7)
  - Neoplasm malignant [Unknown]
  - Lower respiratory tract infection [Unknown]
  - Death [Fatal]
  - Bone disorder [Unknown]
  - Immune system disorder [Unknown]
  - Feeling abnormal [Unknown]
  - Malaise [Unknown]
